FAERS Safety Report 25004660 (Version 1)
Quarter: 2025Q1

REPORT INFORMATION
  Report Type: Other
  Country: CA (occurrence: CA)
  Receive Date: 20250224
  Receipt Date: 20250224
  Transmission Date: 20250409
  Serious: No
  Sender: TOLMAR
  Company Number: CA-20250130-b1d0b3

PATIENT
  Age: 61 Year
  Sex: Male

DRUGS (3)
  1. ELIGARD [Suspect]
     Active Substance: LEUPROLIDE ACETATE
     Indication: Prostate cancer
     Dosage: 22.5 MG Q 3 MONTHS
     Route: 058
     Dates: start: 20250129
  2. ELIGARD [Suspect]
     Active Substance: LEUPROLIDE ACETATE
     Dosage: 22.5 MG Q 3 MONTHS
     Route: 058
     Dates: start: 20191105
  3. ELIGARD [Suspect]
     Active Substance: LEUPROLIDE ACETATE
     Indication: Prostate cancer

REACTIONS (1)
  - Product administered by wrong person [Recovered/Resolved]

NARRATIVE: CASE EVENT DATE: 20250129
